FAERS Safety Report 13774946 (Version 1)
Quarter: 2017Q3

REPORT INFORMATION
  Report Type: Spontaneous
  Country: US (occurrence: US)
  Receive Date: 20170720
  Receipt Date: 20170720
  Transmission Date: 20171127
  Serious: No
  Sender: FDA-Public Use
  Company Number: None

PATIENT
  Age: 55 Year
  Sex: Female

DRUGS (1)
  1. HUMIRA [Suspect]
     Active Substance: ADALIMUMAB
     Indication: CROHN^S DISEASE
     Dosage: 40MG EVERY OTHER  WEEK
     Route: 058
     Dates: start: 20170415

REACTIONS (2)
  - Hot flush [None]
  - Dizziness [None]

NARRATIVE: CASE EVENT DATE: 20170601
